FAERS Safety Report 13405562 (Version 2)
Quarter: 2018Q3

REPORT INFORMATION
  Report Type: Spontaneous
  Country: US (occurrence: US)
  Receive Date: 20170405
  Receipt Date: 20180817
  Transmission Date: 20181010
  Serious: No
  Sender: FDA-Public Use
  Company Number: US-PFIZER INC-2017145374

PATIENT
  Age: 45 Year
  Sex: Female

DRUGS (1)
  1. IBRANCE [Suspect]
     Active Substance: PALBOCICLIB
     Dosage: 125 MG, CYCLIC (Q DAY X21 DAYS, 7 DAYS OFF)(QD X21 D, THEN TAKE 7D OFF)
     Route: 048
     Dates: start: 20170309

REACTIONS (1)
  - Rash [Unknown]
